FAERS Safety Report 6752829-2 (Version None)
Quarter: 2010Q2

REPORT INFORMATION
  Report Type: 
  Country: None (occurrence: None)
  Receive Date: 20100603
  Receipt Date: 20100525
  Transmission Date: 20101027
  Serious: Yes (Hospitalization)
  Sender: FDA-Public Use
  Company Number: 2007BI026808

PATIENT
  Age: 64 Year
  Sex: Female
  Weight: 79 kg

DRUGS (7)
  1. AVONEX [Suspect]
     Indication: MULTIPLE SCLEROSIS
     Route: 030
     Dates: start: 20040401
  2. LIPITROL [Concomitant]
     Indication: BLOOD CHOLESTEROL INCREASED
     Route: 048
  3. SIMVASTATIN [Concomitant]
     Indication: BLOOD CHOLESTEROL INCREASED
     Route: 048
  4. HCTZ [Concomitant]
     Indication: HYPERTENSION
     Route: 048
  5. POTASSIUM [Concomitant]
     Indication: SUPPLEMENTATION THERAPY
     Route: 048
  6. MULTI-VITAMINS [Concomitant]
     Indication: SUPPLEMENTATION THERAPY
     Route: 048
  7. DETROL [Concomitant]
     Indication: HYPERTONIC BLADDER
     Route: 048

REACTIONS (3)
  - ARTHRITIS [None]
  - KNEE ARTHROPLASTY [None]
  - PAIN [None]
